FAERS Safety Report 4396571-4 (Version None)
Quarter: 2004Q2

REPORT INFORMATION
  Report Type: 
  Country: None (occurrence: None)
  Receive Date: 20040524
  Receipt Date: 20030423
  Transmission Date: 20050107
  Serious: Yes (Hospitalization)
  Sender: FDA-Public Use
  Company Number: WSDF 333

PATIENT
  Age: 52 Year
  Sex: Male
  Weight: 90.7194 kg

DRUGS (2)
  1. WINRHO SDF [Suspect]
     Indication: IDIOPATHIC THROMBOCYTOPENIC PURPURA
     Dosage: 76.1 MCG/KG IV, ONCE
     Route: 042
     Dates: start: 20030417
  2. PREDNISONE [Concomitant]

REACTIONS (1)
  - HAEMOLYTIC ANAEMIA [None]
